FAERS Safety Report 7471312-2 (Version None)
Quarter: 2011Q2

REPORT INFORMATION
  Report Type: 
  Country: None (occurrence: None)
  Receive Date: 20110510
  Receipt Date: 20100218
  Transmission Date: 20111010
  Serious: Yes (Other)
  Sender: FDA-Public Use
  Company Number: DE-GENENTECH-318279

PATIENT
  Age: 88 Year
  Sex: Female

DRUGS (1)
  1. LUCENTIS [Suspect]
     Indication: AGE-RELATED MACULAR DEGENERATION
     Dosage: UNK
     Route: 031
     Dates: start: 20090909

REACTIONS (4)
  - PAIN IN EXTREMITY [None]
  - LIMB CRUSHING INJURY [None]
  - VISUAL ACUITY REDUCED [None]
  - BRONCHITIS [None]
